FAERS Safety Report 25506499 (Version 1)
Quarter: 2025Q3

REPORT INFORMATION
  Report Type: Spontaneous
  Country: US (occurrence: US)
  Receive Date: 20250702
  Receipt Date: 20250702
  Transmission Date: 20251021
  Serious: Yes (Hospitalization, Disabling, Other)
  Sender: NOVARTIS
  Company Number: US-002147023-NVSC2025US102641

PATIENT
  Age: 54 Year
  Sex: Male

DRUGS (1)
  1. TASIGNA [Suspect]
     Active Substance: NILOTINIB
     Indication: Chronic myeloid leukaemia
     Dosage: UNK, BID (ONE PILL IN THE MORNING AND ONE PILL IN THE EVENING)
     Route: 065
     Dates: start: 2010, end: 2018

REACTIONS (3)
  - Cerebrovascular accident [Unknown]
  - Musculoskeletal disorder [Unknown]
  - Speech disorder [Unknown]
